FAERS Safety Report 25720313 (Version 1)
Quarter: 2025Q3

REPORT INFORMATION
  Report Type: Spontaneous
  Country: CN (occurrence: CN)
  Receive Date: 20250825
  Receipt Date: 20250825
  Transmission Date: 20251020
  Serious: Yes (Other)
  Sender: CHEPLAPHARM
  Company Number: CN-CHEPLA-2025009937

PATIENT
  Sex: Male

DRUGS (2)
  1. OLANZAPINE [Suspect]
     Active Substance: OLANZAPINE
     Indication: Schizophrenia
     Dosage: QD PO?DAILY DOSE: 15 MILLIGRAM
     Route: 048
     Dates: start: 20210927, end: 20250809
  2. AMISULPRIDE [Suspect]
     Active Substance: AMISULPRIDE
     Indication: Schizophrenia
     Dosage: QD PO?DAILY DOSE: 150 MILLIGRAM
     Route: 048
     Dates: start: 20210927, end: 20250809

REACTIONS (5)
  - Tremor [Not Recovered/Not Resolved]
  - Hyperhidrosis [Unknown]
  - Pyrexia [Unknown]
  - Muscle rigidity [Unknown]
  - Influenza [Unknown]

NARRATIVE: CASE EVENT DATE: 20240101
